FAERS Safety Report 16998952 (Version 2)
Quarter: 2020Q1

REPORT INFORMATION
  Report Type: Spontaneous
  Country: US (occurrence: US)
  Receive Date: 20191106
  Receipt Date: 20200123
  Transmission Date: 20200409
  Serious: Yes (Hospitalization, Other)
  Sender: FDA-Public Use
  Company Number: US-ASTRAZENECA-2019SF56690

PATIENT
  Age: 22692 Day
  Sex: Female
  Weight: 102.1 kg

DRUGS (43)
  1. ONGLYZA [Suspect]
     Active Substance: SAXAGLIPTIN HYDROCHLORIDE
     Indication: TYPE 2 DIABETES MELLITUS
     Route: 048
     Dates: start: 20150214, end: 20151015
  2. ONGLYZA [Suspect]
     Active Substance: SAXAGLIPTIN HYDROCHLORIDE
     Indication: TYPE 2 DIABETES MELLITUS
     Route: 048
     Dates: start: 20150318
  3. FLOVENT HFA [Concomitant]
     Active Substance: FLUTICASONE PROPIONATE
  4. TAMIFLU [Concomitant]
     Active Substance: OSELTAMIVIR PHOSPHATE
  5. CLONIDINE. [Concomitant]
     Active Substance: CLONIDINE
  6. METFORMIN HYDROCHLORIDE. [Concomitant]
     Active Substance: METFORMIN HYDROCHLORIDE
  7. XARELTO [Concomitant]
     Active Substance: RIVAROXABAN
  8. COREG [Concomitant]
     Active Substance: CARVEDILOL
  9. BRILINTA [Concomitant]
     Active Substance: TICAGRELOR
  10. ZOSTAVAX [Concomitant]
     Active Substance: VARICELLA-ZOSTER VIRUS STRAIN OKA/MERCK LIVE ANTIGEN
  11. LOFIBRA [Concomitant]
     Active Substance: FENOFIBRATE
  12. LISINOPRIL. [Concomitant]
     Active Substance: LISINOPRIL
  13. VALTREX [Concomitant]
     Active Substance: VALACYCLOVIR HYDROCHLORIDE
  14. BENAZEPRIL [Concomitant]
     Active Substance: BENAZEPRIL HYDROCHLORIDE
  15. SPIRONOLACTONE. [Concomitant]
     Active Substance: SPIRONOLACTONE
  16. LYRICA [Concomitant]
     Active Substance: PREGABALIN
  17. FUROSEMIDE. [Concomitant]
     Active Substance: FUROSEMIDE
  18. LIPITOR [Concomitant]
     Active Substance: ATORVASTATIN CALCIUM
  19. ONGLYZA [Suspect]
     Active Substance: SAXAGLIPTIN HYDROCHLORIDE
     Indication: TYPE 2 DIABETES MELLITUS
     Dosage: GENERIC
     Route: 065
  20. SIMVASTATIN. [Concomitant]
     Active Substance: SIMVASTATIN
  21. SINGULAIR [Concomitant]
     Active Substance: MONTELUKAST SODIUM
  22. TRAMADOL. [Concomitant]
     Active Substance: TRAMADOL
  23. ARMOUR THYROID [Concomitant]
     Active Substance: THYROID, PORCINE
  24. ELIQUIS [Concomitant]
     Active Substance: APIXABAN
  25. CIPRO [Concomitant]
     Active Substance: CIPROFLOXACIN HYDROCHLORIDE
  26. VITAMIN D [Concomitant]
     Active Substance: VITAMIN D NOS
  27. ASPIRIN. [Concomitant]
     Active Substance: ASPIRIN
  28. CARTIA XT [Concomitant]
     Active Substance: DILTIAZEM HYDROCHLORIDE
  29. GLIPIZIDE. [Concomitant]
     Active Substance: GLIPIZIDE
  30. ZETIA [Concomitant]
     Active Substance: EZETIMIBE
  31. JANUVIA [Concomitant]
     Active Substance: SITAGLIPTIN PHOSPHATE
  32. LEVEMIR [Concomitant]
     Active Substance: INSULIN DETEMIR
  33. LEVOTHYROXINE. [Concomitant]
     Active Substance: LEVOTHYROXINE
  34. BYDUREON [Concomitant]
     Active Substance: EXENATIDE
  35. NOVOLOG [Concomitant]
     Active Substance: INSULIN ASPART
  36. ALDARA [Concomitant]
     Active Substance: IMIQUIMOD
  37. ETODOLAC. [Concomitant]
     Active Substance: ETODOLAC
  38. GABAPENTIN. [Concomitant]
     Active Substance: GABAPENTIN
  39. SYNTHROID [Concomitant]
     Active Substance: LEVOTHYROXINE SODIUM
  40. NYSTOP [Concomitant]
     Active Substance: NYSTATIN
  41. ZOFRAN [Concomitant]
     Active Substance: ONDANSETRON HYDROCHLORIDE
  42. KEFLEX [Concomitant]
     Active Substance: CEPHALEXIN
  43. CALTRATE [Concomitant]
     Active Substance: CALCIUM CARBONATE

REACTIONS (6)
  - Acute left ventricular failure [Unknown]
  - Myocardial infarction [Unknown]
  - Hypertensive heart disease [Unknown]
  - Cardiac failure congestive [Unknown]
  - Cardiac failure [Unknown]
  - Chronic left ventricular failure [Unknown]

NARRATIVE: CASE EVENT DATE: 20151011
